FAERS Safety Report 8584044-4 (Version None)
Quarter: 2012Q3

REPORT INFORMATION
  Report Type: 
  Country: None (occurrence: None)
  Receive Date: 20120810
  Receipt Date: 20120726
  Transmission Date: 20120928
  Serious: No
  Sender: FDA-Public Use
  Company Number: US-009507513-1207USA003044

PATIENT

DRUGS (2)
  1. COSOPT [Suspect]
     Indication: GLAUCOMA
     Dosage: 1 DROP BID
     Route: 047
     Dates: start: 20120702, end: 20120702
  2. TRAVATAN [Concomitant]
     Indication: GLAUCOMA
     Dosage: UNK, ONCE

REACTIONS (5)
  - DRUG HYPERSENSITIVITY [None]
  - DYSPNOEA [None]
  - DYSPHAGIA [None]
  - COUGH [None]
  - PHARYNGEAL OEDEMA [None]
